FAERS Safety Report 22974007 (Version 4)
Quarter: 2024Q3

REPORT INFORMATION
  Report Type: Report from Study
  Country: US (occurrence: US)
  Receive Date: 20230922
  Receipt Date: 20240820
  Transmission Date: 20241017
  Serious: No
  Sender: NOVARTIS
  Company Number: US-SANDOZ-SDZ2023US028308

PATIENT
  Sex: Female

DRUGS (3)
  1. METHOTREXATE [Suspect]
     Active Substance: METHOTREXATE
     Indication: Psoriasis
     Dosage: UNK
     Route: 065
  2. COSENTYX [Suspect]
     Active Substance: SECUKINUMAB
     Indication: Psoriasis
     Dosage: 300 MG, QW, (LOADING DOSES)
     Route: 058
  3. COSENTYX [Suspect]
     Active Substance: SECUKINUMAB
     Indication: Psoriatic arthropathy
     Dosage: 300 MG, QMO
     Route: 058

REACTIONS (5)
  - Alopecia [Unknown]
  - Injection site bruising [Unknown]
  - Skin lesion [Unknown]
  - Treatment failure [Unknown]
  - Therapeutic product effect incomplete [Unknown]
